FAERS Safety Report 6068613-1 (Version None)
Quarter: 2009Q1

REPORT INFORMATION
  Report Type: 
  Country: None (occurrence: None)
  Receive Date: 20090206
  Receipt Date: 20090202
  Transmission Date: 20090719
  Serious: Yes (Other)
  Sender: FDA-Public Use
  Company Number: JP-AVENTIS-200910054JP

PATIENT
  Age: 60 Year
  Sex: Male
  Weight: 75 kg

DRUGS (11)
  1. CLEXANE [Suspect]
     Indication: HIP ARTHROPLASTY
     Route: 058
     Dates: start: 20081221, end: 20081226
  2. PANSPORIN [Suspect]
     Route: 041
     Dates: start: 20081219, end: 20081222
  3. AMIKACIN SULFATE [Concomitant]
     Indication: ANTIBIOTIC PROPHYLAXIS
     Route: 061
     Dates: start: 20081219, end: 20081219
  4. BLOPRESS [Concomitant]
     Indication: HYPERTENSION
     Route: 048
     Dates: start: 20071028, end: 20081218
  5. BLOPRESS [Concomitant]
     Route: 048
     Dates: start: 20081222
  6. LASIX [Concomitant]
     Indication: HYPERTENSION
     Route: 048
     Dates: start: 20071028, end: 20081218
  7. LASIX [Concomitant]
     Route: 048
     Dates: start: 20081222
  8. CARDENALIN [Concomitant]
     Indication: HYPERTENSION
     Route: 048
     Dates: start: 20071119, end: 20081218
  9. CARDENALIN [Concomitant]
     Route: 048
     Dates: start: 20081222
  10. ENALAPRIL MALEATE [Concomitant]
     Indication: HYPERTENSION
     Route: 048
     Dates: start: 20071119, end: 20081218
  11. ENALAPRIL MALEATE [Concomitant]
     Route: 048
     Dates: start: 20081222

REACTIONS (2)
  - CHOLESTATIC LIVER INJURY [None]
  - HEPATIC ENZYME INCREASED [None]
